FAERS Safety Report 14410874 (Version 1)
Quarter: 2018Q1

REPORT INFORMATION
  Report Type: Spontaneous
  Country: DE (occurrence: DE)
  Receive Date: 20180119
  Receipt Date: 20180119
  Transmission Date: 20180509
  Serious: Yes (Hospitalization)
  Sender: FDA-Public Use
  Company Number: DE-WEST-WARD PHARMACEUTICALS CORP.-DE-H14001-18-00337

PATIENT

DRUGS (2)
  1. VIMPAT [Suspect]
     Active Substance: LACOSAMIDE
     Indication: PRODUCT USED FOR UNKNOWN INDICATION
     Dosage: 50-0-50
     Route: 065
     Dates: start: 2017, end: 2017
  2. LEVETIRACETAM. [Suspect]
     Active Substance: LEVETIRACETAM
     Indication: TEMPORAL LOBE EPILEPSY
     Dosage: 0-0-125
     Route: 065
     Dates: start: 2017, end: 2017

REACTIONS (13)
  - Muscle spasms [Unknown]
  - Malaise [Unknown]
  - Paraesthesia [Unknown]
  - Nerve compression [Unknown]
  - Feeling abnormal [Unknown]
  - Chills [Unknown]
  - Sensation of foreign body [Unknown]
  - Swelling face [Unknown]
  - Lymphadenopathy [Unknown]
  - Hyperaesthesia [Unknown]
  - Muscle tightness [Unknown]
  - Fear [Unknown]
  - Intentional product misuse [Recovered/Resolved]

NARRATIVE: CASE EVENT DATE: 2017
